FAERS Safety Report 10312959 (Version 1)
Quarter: 2014Q3

REPORT INFORMATION
  Report Type: Report from Study
  Country: US (occurrence: US)
  Receive Date: 20140718
  Receipt Date: 20140718
  Transmission Date: 20150326
  Serious: Yes (Other)
  Sender: FDA-Public Use
  Company Number: US-SA-2014SA093182

PATIENT
  Age: 77 Year
  Sex: Male

DRUGS (2)
  1. SOLOSTAR [Concomitant]
     Active Substance: DEVICE
  2. APIDRA SOLOSTAR [Suspect]
     Active Substance: INSULIN GLULISINE
     Indication: PRODUCT USED FOR UNKNOWN INDICATION
     Dosage: DOSE:25 UNIT(S)
     Route: 065

REACTIONS (1)
  - Lung neoplasm malignant [Unknown]

NARRATIVE: CASE EVENT DATE: 2014
